FAERS Safety Report 17480561 (Version 1)
Quarter: 2020Q1

REPORT INFORMATION
  Report Type: Spontaneous
  Country: DE (occurrence: DE)
  Receive Date: 20200301
  Receipt Date: 20200301
  Transmission Date: 20200409
  Serious: Yes (Other)
  Sender: FDA-Public Use
  Company Number: NVSC2020DE053443

PATIENT
  Age: 80 Year
  Sex: Male

DRUGS (2)
  1. MEKINIST [Suspect]
     Active Substance: TRAMETINIB DIMETHYL SULFOXIDE
     Indication: PAPILLARY THYROID CANCER
     Dosage: UNK
     Route: 065
     Dates: start: 201904
  2. TAFINLAR [Suspect]
     Active Substance: DABRAFENIB MESYLATE
     Indication: PAPILLARY THYROID CANCER
     Dosage: UNK
     Route: 065
     Dates: start: 201904

REACTIONS (3)
  - Thrombocytopenia [Unknown]
  - General physical health deterioration [Unknown]
  - Product use in unapproved indication [Unknown]
